FAERS Safety Report 24268157 (Version 1)
Quarter: 2024Q3

REPORT INFORMATION
  Report Type: Spontaneous
  Country: CN (occurrence: CN)
  Receive Date: 20240830
  Receipt Date: 20240830
  Transmission Date: 20241017
  Serious: Yes (Other)
  Sender: SANOFI AVENTIS
  Company Number: CN-SA-2024SA252271

PATIENT
  Age: 94 Year
  Sex: Male

DRUGS (4)
  1. ENOXAPARIN SODIUM [Suspect]
     Active Substance: ENOXAPARIN SODIUM
     Indication: Anticoagulant therapy
     Dosage: 0.4 ML, Q12H
     Route: 058
     Dates: start: 20240723, end: 20240726
  2. ENOXAPARIN SODIUM [Suspect]
     Active Substance: ENOXAPARIN SODIUM
     Dosage: 0.2 ML, Q12H
     Route: 058
     Dates: start: 20240805, end: 20240808
  3. NADROPARIN CALCIUM [Suspect]
     Active Substance: NADROPARIN CALCIUM
     Indication: Anticoagulant therapy
     Dosage: 0.4 ML, Q12H
     Route: 058
     Dates: start: 20240727, end: 20240731
  4. CASPOFUNGIN ACETATE [Concomitant]
     Active Substance: CASPOFUNGIN ACETATE
     Indication: Pneumonia
     Dosage: 50 MG, QD
     Route: 041
     Dates: start: 20240802, end: 20240807

REACTIONS (5)
  - Brain herniation [Recovering/Resolving]
  - Haemorrhage intracranial [Recovering/Resolving]
  - Cerebral haemorrhage [Recovering/Resolving]
  - Subdural haematoma [Recovering/Resolving]
  - Hypercoagulation [Unknown]

NARRATIVE: CASE EVENT DATE: 20240805
